FAERS Safety Report 15998891 (Version 2)
Quarter: 2019Q1

REPORT INFORMATION
  Report Type: Spontaneous
  Country: US (occurrence: US)
  Receive Date: 20190223
  Receipt Date: 20190321
  Transmission Date: 20190418
  Serious: Yes (Other)
  Sender: FDA-Public Use
  Company Number: US-TEVA-2019-US-1016938

PATIENT
  Sex: Female

DRUGS (10)
  1. SYNRIBO [Suspect]
     Active Substance: OMACETAXINE MEPESUCCINATE
     Indication: CHRONIC MYELOID LEUKAEMIA
     Dosage: 14 DAYS
     Route: 065
     Dates: start: 20190209
  2. ALLOPURINOL. [Concomitant]
     Active Substance: ALLOPURINOL
  3. OXYCODONE [Concomitant]
     Active Substance: OXYCODONE
  4. BUSIPRONE [Concomitant]
  5. ZOFRAN [Concomitant]
     Active Substance: ONDANSETRON HYDROCHLORIDE
  6. VITAMIN D3 [Concomitant]
     Active Substance: CHOLECALCIFEROL
  7. PROCHLORPERAZINE. [Concomitant]
     Active Substance: PROCHLORPERAZINE
  8. SENOKOT [Concomitant]
     Active Substance: SENNOSIDES
  9. LOPERAMIDE [Concomitant]
     Active Substance: LOPERAMIDE
  10. BACLOFEN. [Concomitant]
     Active Substance: BACLOFEN

REACTIONS (3)
  - Vomiting [Unknown]
  - Dehydration [Unknown]
  - Blood uric acid increased [Unknown]
